FAERS Safety Report 4638871-6 (Version None)
Quarter: 2005Q2

REPORT INFORMATION
  Report Type: 
  Country: None (occurrence: None)
  Receive Date: 20050419
  Receipt Date: 20050131
  Transmission Date: 20051028
  Serious: No
  Sender: FDA-Public Use
  Company Number: US-BRISTOL-MYERS SQUIBB COMPANY-12843280

PATIENT
  Sex: Male

DRUGS (1)
  1. METAGLIP [Suspect]
     Indication: DIABETES MELLITUS
     Dosage: DOSAGE FORM = TABLET (2.5MG/500MG PER TABLET)
     Route: 048

REACTIONS (1)
  - BLOOD GLUCOSE INCREASED [None]
